FAERS Safety Report 20797036 (Version 1)
Quarter: 2022Q2

REPORT INFORMATION
  Report Type: Spontaneous
  Country: DK (occurrence: DK)
  Receive Date: 20220506
  Receipt Date: 20220506
  Transmission Date: 20220721
  Serious: Yes (Disabling)
  Sender: FDA-Public Use
  Company Number: None

PATIENT
  Age: 30 Year
  Sex: Male
  Weight: 82 kg

DRUGS (3)
  1. RITALIN [Suspect]
     Active Substance: METHYLPHENIDATE HYDROCHLORIDE
     Indication: Product used for unknown indication
     Dosage: DOSAGE WAS INITIALLY LOW DOSE INCREASING TO 35 MG A DAY.STRENGTH: 10 MG
     Route: 048
     Dates: start: 20191106, end: 20191202
  2. RISPERDAL [Concomitant]
     Active Substance: RISPERIDONE
     Indication: Tachyphrenia
     Dosage: UNK
     Route: 065
     Dates: start: 20161101
  3. OXAZEPAM [Concomitant]
     Active Substance: OXAZEPAM
     Indication: Anxiety
     Dosage: UNK
     Route: 065
     Dates: start: 20161024

REACTIONS (7)
  - Headache [Not Recovered/Not Resolved]
  - Sensory overload [Not Recovered/Not Resolved]
  - Alopecia [Not Recovered/Not Resolved]
  - Memory impairment [Not Recovered/Not Resolved]
  - Motion sickness [Not Recovered/Not Resolved]
  - Hunger [Not Recovered/Not Resolved]
  - Cognitive disorder [Not Recovered/Not Resolved]

NARRATIVE: CASE EVENT DATE: 20191114
